FAERS Safety Report 12204557 (Version 2)
Quarter: 2016Q2

REPORT INFORMATION
  Report Type: Spontaneous
  Country: CN (occurrence: CN)
  Receive Date: 20160323
  Receipt Date: 20160505
  Transmission Date: 20160815
  Serious: Yes (Other)
  Sender: FDA-Public Use
  Company Number: CN-ROCHE-1729353

PATIENT
  Sex: Female
  Weight: 80 kg

DRUGS (2)
  1. TAXOTERE [Suspect]
     Active Substance: DOCETAXEL
     Indication: BREAST CANCER
     Dosage: DAY 2
     Route: 041
     Dates: start: 20150621, end: 20150621
  2. HERCEPTIN [Suspect]
     Active Substance: TRASTUZUMAB
     Indication: BREAST CANCER
     Dosage: DAY 1
     Route: 041
     Dates: start: 20150620

REACTIONS (1)
  - Hepatic function abnormal [Unknown]
